FAERS Safety Report 7304124-0 (Version None)
Quarter: 2011Q1

REPORT INFORMATION
  Report Type: 
  Country: None (occurrence: None)
  Receive Date: 20110221
  Receipt Date: 20110202
  Transmission Date: 20110831
  Serious: Yes (Other)
  Sender: FDA-Public Use
  Company Number: CA-GENENTECH-307873

PATIENT
  Sex: Female

DRUGS (3)
  1. PREDNISONE [Concomitant]
     Indication: PRODUCT USED FOR UNKNOWN INDICATION
  2. XOLAIR [Suspect]
     Dosage: 225 MG, Q2W
  3. XOLAIR [Suspect]
     Indication: ASTHMA
     Dosage: 300 MG, 1/MONTH
     Route: 058
     Dates: start: 20100616

REACTIONS (10)
  - DRUG INEFFECTIVE [None]
  - ABNORMAL FAECES [None]
  - PLEURAL RUB [None]
  - NAUSEA [None]
  - PNEUMONIA [None]
  - HEART RATE INCREASED [None]
  - PALLOR [None]
  - RALES [None]
  - COLD SWEAT [None]
  - BRONCHITIS [None]
